FAERS Safety Report 19908745 (Version 3)
Quarter: 2021Q4

REPORT INFORMATION
  Report Type: Spontaneous
  Country: FI (occurrence: FI)
  Receive Date: 20211001
  Receipt Date: 20211107
  Transmission Date: 20220303
  Serious: Yes (Other)
  Sender: FDA-Public Use
  Company Number: FI-TEVA-2021-FI-1958827

PATIENT
  Age: 48 Year
  Sex: Female

DRUGS (3)
  1. AJOVY [Suspect]
     Active Substance: FREMANEZUMAB-VFRM
     Route: 065
     Dates: start: 202005, end: 202012
  2. ERENUMAB [Suspect]
     Active Substance: ERENUMAB
     Route: 065
     Dates: start: 201911
  3. GALCANEZUMAB [Suspect]
     Active Substance: GALCANEZUMAB
     Route: 065
     Dates: start: 202012

REACTIONS (1)
  - Breast cancer [Unknown]
